FAERS Safety Report 9478203 (Version 2)
Quarter: 2013Q4

REPORT INFORMATION
  Report Type: Report from Study
  Country: KR (occurrence: KR)
  Receive Date: 20130827
  Receipt Date: 20131113
  Transmission Date: 20140711
  Serious: Yes (Death, Hospitalization)
  Sender: FDA-Public Use
  Company Number: KR-SANOFI-AVENTIS-2013SA084592

PATIENT
  Age: 39 Year
  Sex: Female
  Weight: 55 kg

DRUGS (5)
  1. LANTUS [Suspect]
     Indication: DIABETES MELLITUS
     Dosage: DOSE:16 UNIT(S)
     Route: 058
     Dates: start: 20130315, end: 20130814
  2. DIABEX [Concomitant]
     Indication: DIABETES MELLITUS
     Route: 048
     Dates: start: 20130315, end: 20130814
  3. SOLONDO [Concomitant]
     Route: 048
  4. CODEINE [Concomitant]
     Route: 048
  5. ZOVIRAX [Concomitant]
     Route: 048

REACTIONS (3)
  - T-cell type acute leukaemia [Fatal]
  - Pyrexia [Unknown]
  - Diarrhoea [Unknown]
